FAERS Safety Report 21222987 (Version 1)
Quarter: 2022Q3

REPORT INFORMATION
  Report Type: Spontaneous
  Country: US (occurrence: None)
  Receive Date: 20220817
  Receipt Date: 20220817
  Transmission Date: 20221027
  Serious: Yes (Other)
  Sender: FDA-Public Use
  Company Number: None

PATIENT
  Sex: 0

DRUGS (2)
  1. FLUTICASONE PROPIONATE [Suspect]
     Active Substance: FLUTICASONE PROPIONATE
     Indication: Dyspnoea
     Dosage: OTHER QUANTITY : 120 INHALATION(S);?FREQUENCY : TWICE A DAY;?
     Route: 055
     Dates: start: 20220713, end: 20220720
  2. FLUTICASONE PROPIONATE [Suspect]
     Active Substance: FLUTICASONE PROPIONATE
     Indication: Wheezing

REACTIONS (2)
  - Heart rate increased [None]
  - Therapy cessation [None]

NARRATIVE: CASE EVENT DATE: 20220713
